FAERS Safety Report 23885715 (Version 1)
Quarter: 2024Q2

REPORT INFORMATION
  Report Type: Spontaneous
  Country: IT (occurrence: IT)
  Receive Date: 20240522
  Receipt Date: 20240522
  Transmission Date: 20240716
  Serious: Yes (Other)
  Sender: FDA-Public Use
  Company Number: IT-PADAGIS-2024PAD00840

PATIENT
  Sex: Male

DRUGS (7)
  1. IBUPROFEN [Suspect]
     Active Substance: IBUPROFEN
     Indication: Back pain
     Dosage: 600 MG, QD
     Route: 065
     Dates: start: 2014, end: 2015
  2. IBUPROFEN [Suspect]
     Active Substance: IBUPROFEN
     Indication: Pain in extremity
  3. LEUPROLIDE ACETATE [Concomitant]
     Active Substance: ISOPROPYL ALCOHOL\LEUPROLIDE ACETATE
     Indication: Muscle building therapy
     Dosage: 500 MG, QD
     Route: 048
  4. STANOZOLOL [Concomitant]
     Active Substance: STANOZOLOL
     Indication: Muscle building therapy
     Dosage: 2 MG/KG
     Route: 048
  5. MESTEROLONE [Concomitant]
     Active Substance: MESTEROLONE
     Indication: Libido increased
     Dosage: UNK
     Route: 065
  6. GONADOTROPIN, CHORIONIC [Concomitant]
     Active Substance: CHORIOGONADOTROPIN ALFA
     Indication: Libido increased
     Dosage: UNK
     Route: 065
  7. CREATINE [Concomitant]
     Active Substance: CREATINE
     Indication: Muscle building therapy
     Dosage: 7 DAYS PER MONTH
     Route: 065

REACTIONS (2)
  - Drug abuse [Unknown]
  - Product use in unapproved indication [Unknown]
